FAERS Safety Report 4356756-X (Version None)
Quarter: 2004Q2

REPORT INFORMATION
  Report Type: 
  Country: None (occurrence: None)
  Receive Date: 20040507
  Receipt Date: 20040415
  Transmission Date: 20050107
  Serious: Yes (Other)
  Sender: FDA-Public Use
  Company Number: JP-040403003

PATIENT
  Age: 46 Year
  Sex: Female
  Weight: 59 kg

DRUGS (2)
  1. GEMZAR [Suspect]
     Indication: LUNG ADENOCARCINOMA
     Dosage: 1500 MG OTHER
     Route: 042
     Dates: start: 20040204, end: 20040204
  2. NAVELBINE [Concomitant]

REACTIONS (1)
  - PNEUMONITIS [None]
